FAERS Safety Report 14915732 (Version 2)
Quarter: 2018Q2

REPORT INFORMATION
  Report Type: Spontaneous
  Country: US (occurrence: US)
  Receive Date: 20180518
  Receipt Date: 20180529
  Transmission Date: 20180711
  Serious: Yes (Death, Hospitalization)
  Sender: FDA-Public Use
  Company Number: US-ACTELION-A-NJ2018-172099

PATIENT
  Age: 11 Month
  Sex: Male

DRUGS (8)
  1. TRACLEER [Suspect]
     Active Substance: BOSENTAN
     Dosage: 6.25 ML (10 MG), BID
     Route: 048
     Dates: start: 20180331
  2. TRACLEER [Suspect]
     Active Substance: BOSENTAN
     Indication: PULMONARY HYPERTENSION
     Dosage: 14 MG, BID
     Route: 048
     Dates: start: 20180124, end: 20180409
  3. SILDENAFIL. [Concomitant]
     Active Substance: SILDENAFIL
     Dosage: 7 MG, TID
     Route: 048
     Dates: start: 201709
  4. FUROSEMIDE. [Concomitant]
     Active Substance: FUROSEMIDE
     Dosage: 6 MG, TID
     Route: 042
     Dates: start: 201709
  5. DIURIL [Concomitant]
     Active Substance: CHLOROTHIAZIDE
     Dosage: 65 MG, BID
     Route: 048
     Dates: start: 201709
  6. SPIRONOLACTONE. [Concomitant]
     Active Substance: SPIRONOLACTONE
     Dosage: 3.4 MG, BID
     Route: 048
     Dates: start: 201802
  7. TREPROSTINIL [Concomitant]
     Active Substance: TREPROSTINIL
     Dosage: 55MCG/KG/MIN
     Route: 058
     Dates: start: 201802
  8. DIGOXIN. [Concomitant]
     Active Substance: DIGOXIN
     Dosage: 30 MCG, BID
     Route: 048
     Dates: start: 201802

REACTIONS (10)
  - Retching [Recovering/Resolving]
  - Aspiration [Recovering/Resolving]
  - Hypoxia [Recovering/Resolving]
  - Sepsis [Fatal]
  - Large intestine anastomosis [Unknown]
  - Condition aggravated [Recovering/Resolving]
  - Gastrooesophageal reflux disease [Recovering/Resolving]
  - Intestinal perforation [Fatal]
  - Bronchial secretion retention [Recovering/Resolving]
  - Choking [Recovering/Resolving]

NARRATIVE: CASE EVENT DATE: 20180409
